FAERS Safety Report 19855775 (Version 1)
Quarter: 2021Q3

REPORT INFORMATION
  Report Type: Spontaneous
  Country: US (occurrence: US)
  Receive Date: 20210920
  Receipt Date: 20210920
  Transmission Date: 20211014
  Serious: No
  Sender: FDA-Public Use
  Company Number: US-TAKEDA-2021TUS057471

PATIENT

DRUGS (3)
  1. NATPARA (PARATHYROID HORMONE) [Suspect]
     Active Substance: PARATHYROID HORMONE
     Indication: POSTOPERATIVE HYPOPITUITARISM
     Dosage: 50 MICROGRAM, QD
     Route: 065
  2. NATPARA (PARATHYROID HORMONE) [Suspect]
     Active Substance: PARATHYROID HORMONE
     Indication: POSTOPERATIVE HYPOPITUITARISM
     Dosage: 50 MICROGRAM, QD
     Route: 065
  3. NATPARA (PARATHYROID HORMONE) [Suspect]
     Active Substance: PARATHYROID HORMONE
     Indication: POSTOPERATIVE HYPOPITUITARISM
     Dosage: 50 MICROGRAM, QD
     Route: 065

REACTIONS (1)
  - Hypocalcaemia [Unknown]
